FAERS Safety Report 15799760 (Version 1)
Quarter: 2019Q1

REPORT INFORMATION
  Report Type: Spontaneous
  Country: US (occurrence: US)
  Receive Date: 20190108
  Receipt Date: 20190108
  Transmission Date: 20190417
  Serious: No
  Sender: FDA-Public Use
  Company Number: US-ALLERGAN-1817260US

PATIENT
  Age: 48 Year
  Sex: Female

DRUGS (5)
  1. XANAX [Concomitant]
     Active Substance: ALPRAZOLAM
     Indication: MENIERE^S DISEASE
     Dosage: UNK UNK, PRN
     Route: 065
  2. AMBIEN [Concomitant]
     Active Substance: ZOLPIDEM TARTRATE
     Dosage: UNK UNK, PRN
     Route: 065
  3. MOBIC [Concomitant]
     Active Substance: MELOXICAM
     Dosage: UNK UNK, PRN
     Route: 065
  4. NORA BE [Suspect]
     Active Substance: NORETHINDRONE
     Indication: MENSTRUATION IRREGULAR
     Dosage: 0.35 MG, UNK
     Route: 065
  5. NORA BE [Suspect]
     Active Substance: NORETHINDRONE
     Indication: MENORRHAGIA

REACTIONS (5)
  - Menorrhagia [Unknown]
  - Off label use [Unknown]
  - Drug ineffective [Unknown]
  - Hypomenorrhoea [Unknown]
  - Metrorrhagia [Not Recovered/Not Resolved]
